FAERS Safety Report 7399721-0 (Version None)
Quarter: 2011Q2

REPORT INFORMATION
  Report Type: 
  Country: None (occurrence: None)
  Receive Date: 20110407
  Receipt Date: 20110329
  Transmission Date: 20111010
  Serious: Yes (Hospitalization)
  Sender: FDA-Public Use
  Company Number: DE-ROCHE-766457

PATIENT
  Sex: Male
  Weight: 103 kg

DRUGS (10)
  1. BEVACIZUMAB [Suspect]
     Indication: RECTAL CANCER
     Dosage: LAST GIVEN DOSAGE PRIOR TO EVENTS WAS ON 2 MAR 2011.
     Route: 042
     Dates: end: 20110302
  2. FLUOROURACIL [Suspect]
     Indication: RECTAL CANCER
     Route: 042
     Dates: start: 20110118, end: 20110301
  3. FOLINIC ACID [Concomitant]
     Indication: RECTAL CANCER
     Route: 042
     Dates: start: 20110118, end: 20110301
  4. IRINOTECAN [Suspect]
     Indication: RECTAL CANCER
     Route: 042
     Dates: start: 20110118, end: 20110301
  5. KEVATRIL [Concomitant]
     Dosage: ON DAYS 1+2 AND 8 AND 9.
     Route: 042
  6. VERGENTAN [Concomitant]
     Dosage: GIVEN ON DAYS 3-5 AND ON 10-12.
     Route: 048
  7. ATROPIN [Concomitant]
     Dosage: GIVEN ON DAYS 1, 8, 15, 29, 36 AND 43.
     Route: 058
  8. BEVACIZUMAB [Suspect]
     Route: 042
     Dates: start: 20110324
  9. TETRYZOLIN [Concomitant]
     Dosage: EYE DROPS AS NEEDED.
  10. DEXAMETHASONE [Concomitant]
     Dosage: GIVEN ON DAY 1 AND 2.
     Route: 042

REACTIONS (5)
  - DEHYDRATION [None]
  - DIARRHOEA [None]
  - GENERAL PHYSICAL HEALTH DETERIORATION [None]
  - GASTROENTERITIS [None]
  - RENAL FAILURE ACUTE [None]
